FAERS Safety Report 17222745 (Version 2)
Quarter: 2025Q2

REPORT INFORMATION
  Report Type: Spontaneous
  Country: US (occurrence: US)
  Receive Date: 20200102
  Receipt Date: 20250409
  Transmission Date: 20250717
  Serious: Yes (Other)
  Sender: APOTEX
  Company Number: US-APOTEX-2019AP026910

PATIENT
  Age: 67 Year
  Sex: Female

DRUGS (10)
  1. LITHIUM [Suspect]
     Active Substance: LITHIUM
     Indication: Bipolar II disorder
     Route: 065
     Dates: start: 201408
  2. LITHIUM [Suspect]
     Active Substance: LITHIUM
     Dosage: 750 MG, QD
     Route: 065
     Dates: start: 201509
  3. NORTRIPTYLINE [Concomitant]
     Active Substance: NORTRIPTYLINE
     Indication: Bipolar II disorder
     Dosage: 75 MG, Q.H.S.
     Route: 065
     Dates: start: 201410
  4. NORTRIPTYLINE [Concomitant]
     Active Substance: NORTRIPTYLINE
     Route: 065
     Dates: start: 201502, end: 201507
  5. NORTRIPTYLINE [Concomitant]
     Active Substance: NORTRIPTYLINE
     Route: 065
     Dates: start: 201502, end: 201507
  6. MAPROTILINE [Concomitant]
     Active Substance: MAPROTILINE
     Indication: Bipolar II disorder
     Dosage: 12.5 MG, Q.AM
     Route: 065
     Dates: start: 201410
  7. LAMOTRIGINE [Concomitant]
     Active Substance: LAMOTRIGINE
     Indication: Bipolar II disorder
     Route: 065
  8. LAMOTRIGINE [Concomitant]
     Active Substance: LAMOTRIGINE
     Route: 065
  9. LAMOTRIGINE [Concomitant]
     Active Substance: LAMOTRIGINE
     Route: 065
  10. DIVALPROEX SODIUM [Concomitant]
     Active Substance: DIVALPROEX SODIUM
     Indication: Bipolar II disorder
     Dosage: 500 MG, Q.H.S.
     Route: 065
     Dates: start: 201509, end: 201605

REACTIONS (1)
  - Hypothyroidism [Recovered/Resolved]

NARRATIVE: CASE EVENT DATE: 20160201
